FAERS Safety Report 13159563 (Version 5)
Quarter: 2017Q2

REPORT INFORMATION
  Report Type: Report from Study
  Country: US (occurrence: US)
  Receive Date: 20170127
  Receipt Date: 20170410
  Transmission Date: 20170830
  Serious: Yes (Death, Hospitalization)
  Sender: FDA-Public Use
  Company Number: US-EXELIXIS-CABO-17008051

PATIENT
  Age: 69 Year
  Sex: Female

DRUGS (4)
  1. LOSARTAN. [Concomitant]
     Active Substance: LOSARTAN
  2. COMETRIQ [Suspect]
     Active Substance: CABOZANTINIB S-MALATE
     Indication: PARATHYROID TUMOUR MALIGNANT
  3. CLARITIN [Concomitant]
     Active Substance: LORATADINE
  4. COMETRIQ [Suspect]
     Active Substance: CABOZANTINIB S-MALATE
     Indication: THYROID CANCER

REACTIONS (2)
  - Hospitalisation [Unknown]
  - Tumour obstruction [Fatal]

NARRATIVE: CASE EVENT DATE: 20170215
